FAERS Safety Report 9964459 (Version 3)
Quarter: 2014Q2

REPORT INFORMATION
  Report Type: Spontaneous
  Country: JP (occurrence: JP)
  Receive Date: 20140305
  Receipt Date: 20140526
  Transmission Date: 20141212
  Serious: Yes (Other)
  Sender: FDA-Public Use
  Company Number: JP-BRISTOL-MYERS SQUIBB COMPANY-20380010

PATIENT
  Age: 33 Year
  Sex: Male

DRUGS (7)
  1. ABILIFY TABS [Suspect]
     Indication: MANIA
     Dosage: 10FB10:16FB10:7D, 26FB10:02MR10:5D, 01SP10:02AG11:336D, 31AG11:ONG 6MG?17FB10:25FB10:9D:12MG
     Route: 048
     Dates: start: 20100210
  2. ABILIFY TABS [Suspect]
     Indication: MANIA
     Route: 048
     Dates: start: 20100303, end: 20100316
  3. ABILIFY TABS [Suspect]
     Indication: MANIA
     Route: 048
     Dates: start: 20100317, end: 20100831
  4. RIVOTRIL [Suspect]
     Route: 048
     Dates: start: 20100226, end: 20100303
  5. DEPAKENE [Concomitant]
     Dosage: TABLET
     Dates: start: 20100127
  6. ZYPREXA [Concomitant]
     Dates: start: 20100127, end: 20100317
  7. HALCION [Concomitant]
     Dosage: TABLET
     Dates: start: 20100127, end: 20120404

REACTIONS (3)
  - Erythema multiforme [Recovered/Resolved]
  - Akathisia [Recovered/Resolved]
  - Lymphocyte stimulation test positive [None]
